FAERS Safety Report 21690170 (Version 2)
Quarter: 2022Q4

REPORT INFORMATION
  Report Type: Spontaneous
  Country: US (occurrence: None)
  Receive Date: 20221206
  Receipt Date: 20221219
  Transmission Date: 20230112
  Serious: Yes (Hospitalization)
  Sender: FDA-Public Use
  Company Number: US-FARMAPROD-202211-2389

PATIENT
  Age: 82 Year
  Sex: Female

DRUGS (11)
  1. OXERVATE [Suspect]
     Active Substance: CENEGERMIN-BKBJ
     Indication: Hypoaesthesia eye
     Route: 047
     Dates: start: 20221024, end: 20221128
  2. LIDODERM [Concomitant]
     Active Substance: LIDOCAINE
     Dosage: ADHESIVE PATCH
  3. MAGNESIUM [Concomitant]
     Active Substance: MAGNESIUM
  4. PRAMIPEXOLE DIHYDROCHLORIDE [Concomitant]
     Active Substance: PRAMIPEXOLE DIHYDROCHLORIDE
     Dosage: EVERY DAY
  5. OMEPRAZOLE [Concomitant]
     Active Substance: OMEPRAZOLE
  6. COSOPT [Concomitant]
     Active Substance: DORZOLAMIDE HYDROCHLORIDE\TIMOLOL MALEATE
     Dosage: 22.3-6.8/1
  7. FUROSEMIDE [Concomitant]
     Active Substance: FUROSEMIDE
  8. AMANTADINE [Concomitant]
     Active Substance: AMANTADINE
  9. GABAPENTIN [Concomitant]
     Active Substance: GABAPENTIN
     Dosage: EVERY DAY
  10. FLUTICASONE PROPIONATE [Concomitant]
     Active Substance: FLUTICASONE PROPIONATE
     Dosage: SPRAY SUSPENSION
  11. ESOMEPRAZOLE [Concomitant]
     Active Substance: ESOMEPRAZOLE

REACTIONS (3)
  - Fall [Recovering/Resolving]
  - Device use issue [Recovered/Resolved]
  - Product administration error [Unknown]

NARRATIVE: CASE EVENT DATE: 20221116
